FAERS Safety Report 24723683 (Version 3)
Quarter: 2025Q3

REPORT INFORMATION
  Report Type: Spontaneous
  Country: US (occurrence: US)
  Receive Date: 20241211
  Receipt Date: 20250714
  Transmission Date: 20251021
  Serious: No
  Sender: SANOFI AVENTIS
  Company Number: US-SA-2024SA364928

PATIENT
  Age: 45 Year
  Sex: Male

DRUGS (1)
  1. DUPIXENT [Suspect]
     Active Substance: DUPILUMAB
     Indication: Dermatitis allergic
     Dosage: 300 MG, QOW
     Route: 058
     Dates: start: 202205, end: 202506

REACTIONS (5)
  - Dry skin [Unknown]
  - Pruritus [Unknown]
  - Dermatitis allergic [Unknown]
  - Condition aggravated [Unknown]
  - Vision blurred [Unknown]

NARRATIVE: CASE EVENT DATE: 20241101
